FAERS Safety Report 21820313 (Version 2)
Quarter: 2023Q1

REPORT INFORMATION
  Report Type: Spontaneous
  Country: US (occurrence: US)
  Receive Date: 20230105
  Receipt Date: 20230106
  Transmission Date: 20230417
  Serious: Yes (Life-Threatening, Hospitalization, Other)
  Sender: FDA-Public Use
  Company Number: US-STRIDES ARCOLAB LIMITED-2023SP000151

PATIENT
  Age: 42 Year
  Sex: Male

DRUGS (9)
  1. LOPERAMIDE [Suspect]
     Active Substance: LOPERAMIDE
     Indication: Drug dependence
     Dosage: 200 MILLIGRAM/DAY, (DAILY) SELF MEDICATED
     Route: 065
  2. LOPERAMIDE [Suspect]
     Active Substance: LOPERAMIDE
     Dosage: 768 MILLIGRAM/DAY, (DAILY) SELF MEDICATED
     Route: 065
  3. VITAMIN C [Concomitant]
     Active Substance: ASCORBIC ACID
     Indication: Prophylaxis
     Dosage: UNK,12,000-14,000 MG/ DAY
     Route: 065
  4. VITAMIN C [Concomitant]
     Active Substance: ASCORBIC ACID
     Dosage: 12000 MG/DAY
     Route: 065
  5. VITAMIN C [Concomitant]
     Active Substance: ASCORBIC ACID
     Dosage: 14000 MG/DAY
     Route: 065
  6. MAGNESIUM CITRATE [Concomitant]
     Active Substance: MAGNESIUM CITRATE
     Indication: Prophylaxis
     Dosage: 1200 MILLIGRAM/DAY
     Route: 065
  7. FISH OIL [Concomitant]
     Active Substance: FISH OIL
     Indication: Prophylaxis
     Dosage: UNK,OIL
     Route: 065
  8. ZINC [Concomitant]
     Active Substance: ZINC
     Indication: Prophylaxis
     Dosage: UNK
     Route: 065
  9. CHOLECALCIFEROL [Concomitant]
     Active Substance: CHOLECALCIFEROL
     Indication: Prophylaxis
     Dosage: 4000 IU/DAY
     Route: 065

REACTIONS (12)
  - Long QT syndrome [Unknown]
  - Coronary artery disease [Unknown]
  - Fall [Unknown]
  - Syncope [Unknown]
  - Loss of consciousness [Unknown]
  - Nodal arrhythmia [Unknown]
  - Ventricular tachycardia [Recovered/Resolved]
  - Self-medication [Unknown]
  - Intentional product misuse [Unknown]
  - Dizziness [Unknown]
  - Toxicity to various agents [Unknown]
  - Off label use [Unknown]
